FAERS Safety Report 8776328 (Version 1)
Quarter: 2012Q4

REPORT INFORMATION
  Report Type: 
  Country: KR (occurrence: KR)
  Receive Date: 20120910
  Receipt Date: 20120910
  Transmission Date: 20130627
  Serious: Yes (Hospitalization)
  Sender: FDA-Public Use
  Company Number: KR-ELI_LILLY_AND_COMPANY-KR201209000603

PATIENT
  Age: 40 Year
  Sex: Female
  Weight: 92 kg

DRUGS (3)
  1. BYETTA [Suspect]
     Indication: TYPE 2 DIABETES MELLITUS
     Dosage: 5 ug, qd
     Dates: start: 20120628, end: 20120725
  2. BYETTA [Suspect]
     Dosage: 5 ug, bid
     Dates: start: 20120725, end: 20120902
  3. DRUG USED IN DIABETES [Concomitant]
     Indication: TYPE 2 DIABETES MELLITUS

REACTIONS (3)
  - Blood glucose increased [Recovering/Resolving]
  - Paraesthesia [Recovering/Resolving]
  - Blood glucose increased [Recovering/Resolving]
